FAERS Safety Report 6978828-3 (Version None)
Quarter: 2010Q3

REPORT INFORMATION
  Report Type: 
  Country: None (occurrence: None)
  Receive Date: 20100913
  Receipt Date: 20100902
  Transmission Date: 20110219
  Serious: Yes (Other)
  Sender: FDA-Public Use
  Company Number: GXKR2010IN10010

PATIENT
  Age: 29 Month
  Sex: Female

DRUGS (5)
  1. PREDNISOLONE (NGX) [Suspect]
     Indication: NEPHROTIC SYNDROME
     Dosage: 2 MG/KG
     Route: 065
  2. PREDNISOLONE (NGX) [Suspect]
     Dosage: 1 MG/KG ON ALTERNATE-DAYS
     Route: 065
  3. PREDNISOLONE (NGX) [Suspect]
     Dosage: 1MG/KG/DAY
     Route: 065
  4. PREDNISOLONE (NGX) [Suspect]
     Dosage: 0.5 MG/KG ON ALTERNATE-DAYS
     Route: 065
  5. CYCLOSPORINE [Concomitant]
     Indication: NEPHROTIC SYNDROME
     Dosage: 4 MG/KG DAILY
     Route: 048

REACTIONS (2)
  - NODULE [None]
  - PANNICULITIS [None]
